FAERS Safety Report 4287737-2 (Version None)
Quarter: 2004Q1

REPORT INFORMATION
  Report Type: 
  Country: None (occurrence: None)
  Receive Date: 20040205
  Receipt Date: 20040109
  Transmission Date: 20041129
  Serious: Yes (Hospitalization)
  Sender: FDA-Public Use
  Company Number: A02200400113

PATIENT
  Age: 64 Year
  Sex: Male

DRUGS (4)
  1. XATRAL         (ALFUZOSIN) [Suspect]
     Indication: BENIGN PROSTATIC HYPERPLASIA
     Dosage: 20 MG OD, NI UNK
     Route: 048
  2. ADVIL [Suspect]
     Dosage: 200 MG ORAL
     Route: 048
  3. PROZAC [Suspect]
     Dosage: 20MG OD
     Route: 048
  4. TANAKAN    (GINKGO TREE LEAVES EXTRACT) - SOLUTION [Suspect]
     Dosage: 40 MG/ML ORAL
     Route: 048

REACTIONS (2)
  - POLYNEUROPATHY [None]
  - SCIATICA [None]
